FAERS Safety Report 9655993 (Version 1)
Quarter: 2013Q4

REPORT INFORMATION
  Report Type: Spontaneous
  Country: US (occurrence: US)
  Receive Date: 20131030
  Receipt Date: 20131030
  Transmission Date: 20140711
  Serious: Yes (Hospitalization, Other)
  Sender: FDA-Public Use
  Company Number: US-AMGEN-USASP2013076118

PATIENT
  Age: 46 Year
  Sex: Female

DRUGS (1)
  1. ENBREL [Suspect]
     Indication: RHEUMATOID ARTHRITIS
     Dosage: 25MG OR 50MG, 4 TIMES A WEEK
     Route: 065
     Dates: start: 2003

REACTIONS (9)
  - Thyroid neoplasm [Recovered/Resolved]
  - Immune system disorder [Unknown]
  - Lymphoma [Unknown]
  - Breast mass [Recovered/Resolved]
  - Dyspnoea [Recovered/Resolved]
  - Splenomegaly [Unknown]
  - Inflammation [Not Recovered/Not Resolved]
  - Mobility decreased [Not Recovered/Not Resolved]
  - Arthralgia [Not Recovered/Not Resolved]
